FAERS Safety Report 10366027 (Version 2)
Quarter: 2014Q4

REPORT INFORMATION
  Report Type: Spontaneous
  Country: JP (occurrence: JP)
  Receive Date: 20140806
  Receipt Date: 20141104
  Transmission Date: 20150528
  Serious: Yes (Other)
  Sender: FDA-Public Use
  Company Number: JP-GLAXOSMITHKLINE-B0999998A

PATIENT

DRUGS (1)
  1. PAZOPANIB [Suspect]
     Active Substance: PAZOPANIB
     Indication: RENAL CANCER RECURRENT
     Dosage: 800 MG, QD
     Route: 048
     Dates: start: 20140424, end: 20140522

REACTIONS (7)
  - Bile duct obstruction [Unknown]
  - Aspartate aminotransferase increased [Unknown]
  - Blood bilirubin increased [Unknown]
  - Hepatic function abnormal [Unknown]
  - Jaundice cholestatic [Unknown]
  - Alanine aminotransferase increased [Unknown]
  - Cholangitis [Unknown]

NARRATIVE: CASE EVENT DATE: 20140522
